FAERS Safety Report 9797928 (Version 3)
Quarter: 2014Q1

REPORT INFORMATION
  Report Type: Report from Study
  Country: AU (occurrence: AU)
  Receive Date: 20140106
  Receipt Date: 20140121
  Transmission Date: 20141002
  Serious: Yes (Other)
  Sender: FDA-Public Use
  Company Number: PHHY2013AU142777

PATIENT
  Sex: Male

DRUGS (2)
  1. SANDOSTATIN LAR [Suspect]
     Indication: NEUROENDOCRINE TUMOUR
     Dosage: 30 MG, UNK
     Route: 030
  2. XELODA [Concomitant]
     Dosage: 3 DF, BID (2 WEEKS ON AND 1 WEEK OFF)

REACTIONS (2)
  - Portal vein thrombosis [Unknown]
  - Blood glucose increased [Unknown]
